FAERS Safety Report 24914972 (Version 2)
Quarter: 2025Q1

REPORT INFORMATION
  Report Type: Spontaneous
  Country: IL (occurrence: IL)
  Receive Date: 20250203
  Receipt Date: 20250228
  Transmission Date: 20250409
  Serious: Yes (Other)
  Sender: TAKEDA
  Company Number: IL-TAKEDA-2025TUS008809

PATIENT
  Age: 70 Year
  Sex: Male

DRUGS (1)
  1. LIVTENCITY [Suspect]
     Active Substance: MARIBAVIR
     Indication: Cytomegalovirus infection
     Dosage: 200 MILLIGRAM, BID
     Dates: start: 20241219, end: 20250126

REACTIONS (1)
  - Leukopenia [Unknown]
